FAERS Safety Report 10152813 (Version 1)
Quarter: 2014Q2

REPORT INFORMATION
  Report Type: Spontaneous
  Country: US (occurrence: None)
  Receive Date: 20140502
  Receipt Date: 20140502
  Transmission Date: 20141212
  Serious: Yes (Other)
  Sender: FDA-Public Use
  Company Number: None

PATIENT
  Age: 66 Year
  Sex: Female

DRUGS (7)
  1. SPINAL BUPIVICAINE [Suspect]
     Indication: JOINT ARTHROPLASTY
     Route: 037
  2. MIDAZOLAM [Concomitant]
  3. FENTANYL [Concomitant]
  4. LIDOCAINE [Concomitant]
  5. PROPOFOL [Concomitant]
  6. OFIRMEV [Concomitant]
  7. ANCEF [Concomitant]

REACTIONS (1)
  - Drug effect decreased [None]
